FAERS Safety Report 12592177 (Version 1)
Quarter: 2016Q3

REPORT INFORMATION
  Report Type: Spontaneous
  Country: US (occurrence: US)
  Receive Date: 20160726
  Receipt Date: 20160726
  Transmission Date: 20161109
  Serious: No
  Sender: FDA-Public Use
  Company Number: US-TEVA-589824USA

PATIENT
  Sex: Female
  Weight: 53.12 kg

DRUGS (1)
  1. METOCLOPRAMIDE. [Suspect]
     Active Substance: METOCLOPRAMIDE
     Indication: GASTROOESOPHAGEAL REFLUX DISEASE
     Dosage: 10 MILLIGRAM DAILY;
     Dates: start: 20030827

REACTIONS (8)
  - Irritable bowel syndrome [Unknown]
  - Incorrect drug administration duration [Unknown]
  - Menopause [Unknown]
  - Hyperhidrosis [Unknown]
  - Gastric disorder [Unknown]
  - Dysphonia [Unknown]
  - Oral mucosal blistering [Unknown]
  - Dyskinesia [Unknown]
